FAERS Safety Report 20568558 (Version 3)
Quarter: 2022Q3

REPORT INFORMATION
  Report Type: Spontaneous
  Country: CO (occurrence: CO)
  Receive Date: 20220308
  Receipt Date: 20220719
  Transmission Date: 20221026
  Serious: Yes (Disabling, Other)
  Sender: FDA-Public Use
  Company Number: CO-PFIZER INC-202200369572

PATIENT
  Age: 79 Year
  Sex: Female

DRUGS (1)
  1. XELJANZ XR [Suspect]
     Active Substance: TOFACITINIB CITRATE
     Indication: Rheumatoid arthritis
     Dosage: 11 MG
     Route: 048

REACTIONS (9)
  - Humerus fracture [Recovering/Resolving]
  - Deafness [Unknown]
  - Disease progression [Unknown]
  - Incontinence [Unknown]
  - Fall [Recovered/Resolved]
  - Joint injury [Recovering/Resolving]
  - Cartilage injury [Recovering/Resolving]
  - Illness [Unknown]
  - Drug ineffective [Unknown]

NARRATIVE: CASE EVENT DATE: 20210801
